FAERS Safety Report 18629998 (Version 1)
Quarter: 2020Q4

REPORT INFORMATION
  Report Type: Spontaneous
  Country: US (occurrence: US)
  Receive Date: 20201217
  Receipt Date: 20201217
  Transmission Date: 20210114
  Serious: No
  Sender: FDA-Public Use
  Company Number: US-TEVA-2020-US-1859497

PATIENT
  Sex: Female

DRUGS (1)
  1. ALPRAZOLAM TEVA [Suspect]
     Active Substance: ALPRAZOLAM
     Route: 065
     Dates: start: 2016

REACTIONS (9)
  - Agitation [Unknown]
  - Drug ineffective [Unknown]
  - Tension [Unknown]
  - Euphoric mood [Unknown]
  - Product taste abnormal [Unknown]
  - Tinnitus [Unknown]
  - Anxiety [Unknown]
  - Feeling abnormal [Unknown]
  - Product physical issue [Unknown]
